FAERS Safety Report 23479690 (Version 2)
Quarter: 2025Q1

REPORT INFORMATION
  Report Type: Spontaneous
  Country: US (occurrence: US)
  Receive Date: 20240205
  Receipt Date: 20250226
  Transmission Date: 20250409
  Serious: No
  Sender: UCB
  Company Number: US-UCBSA-2023009196

PATIENT
  Age: 31 Month
  Sex: Male

DRUGS (5)
  1. LEVETIRACETAM [Suspect]
     Active Substance: LEVETIRACETAM
     Indication: Seizure
  2. OXCARBAZEPINE [Suspect]
     Active Substance: OXCARBAZEPINE
     Indication: Seizure
  3. TOPIRAMATE [Suspect]
     Active Substance: TOPIRAMATE
     Indication: Seizure
  4. VALPROIC ACID [Suspect]
     Active Substance: VALPROIC ACID
     Indication: Seizure
  5. FELBAMATE [Suspect]
     Active Substance: FELBAMATE
     Indication: Seizure

REACTIONS (1)
  - Multiple-drug resistance [Unknown]
